FAERS Safety Report 6545682-3 (Version None)
Quarter: 2010Q1

REPORT INFORMATION
  Report Type: 
  Country: None (occurrence: None)
  Receive Date: 20100121
  Receipt Date: 20100108
  Transmission Date: 20100710
  Serious: Yes (Hospitalization)
  Sender: FDA-Public Use
  Company Number: US-WATSON-2010-00576

PATIENT
  Age: 50 Year
  Sex: Female

DRUGS (2)
  1. NICARDIPINE (WATSON LABORATORIES) [Suspect]
     Indication: HYPERTENSION
     Dosage: 5 MG/HR,
     Route: 042
  2. AMLODIPINE BESYLATE [Suspect]
     Indication: HYPERTENSION
     Dosage: 10 MG, DAILY
     Route: 048

REACTIONS (3)
  - ANGIOEDEMA [None]
  - FACE OEDEMA [None]
  - SWOLLEN TONGUE [None]
